FAERS Safety Report 13349004 (Version 1)
Quarter: 2017Q1

REPORT INFORMATION
  Report Type: Spontaneous
  Country: IN (occurrence: IN)
  Receive Date: 20170320
  Receipt Date: 20170320
  Transmission Date: 20170428
  Serious: Yes (Other)
  Sender: FDA-Public Use
  Company Number: IN-SUN PHARMACEUTICAL INDUSTRIES LTD-2016R1-110929

PATIENT
  Age: 45 Year
  Sex: Female

DRUGS (4)
  1. PENTAZOCINE [Suspect]
     Active Substance: PENTAZOCINE
     Indication: HEADACHE
     Dosage: 1 DF, 1/WEEK
     Route: 042
  2. PHENARGAN [Concomitant]
     Indication: PHOTOPHOBIA
  3. PENTAZOCINE [Suspect]
     Active Substance: PENTAZOCINE
     Indication: PHOTOPHOBIA
     Dosage: 1 DF, TID
     Route: 030
  4. PHENARGAN [Concomitant]
     Indication: HEADACHE
     Route: 042

REACTIONS (6)
  - Administration site ulcer [Recovering/Resolving]
  - Abnormal behaviour [Unknown]
  - Myopathy [Unknown]
  - Finger deformity [Unknown]
  - Drug dependence [Unknown]
  - Scar [Unknown]
